FAERS Safety Report 4644037-6 (Version None)
Quarter: 2005Q2

REPORT INFORMATION
  Report Type: 
  Country: None (occurrence: None)
  Receive Date: 20050331
  Receipt Date: 20050217
  Transmission Date: 20051028
  Serious: No
  Sender: FDA-Public Use
  Company Number: 05P-163-0291162-00

PATIENT
  Age: 70 Year
  Sex: Female
  Weight: 70.3075 kg

DRUGS (11)
  1. HUMIRA [Suspect]
     Indication: RHEUMATOID ARTHRITIS
     Dosage: 40 MG SUBCUTANEOUS
     Route: 058
     Dates: start: 20050105
  2. PREDNISONE [Concomitant]
  3. CLOPIDOGREL BISULFATE [Concomitant]
  4. FUROSEMIDE [Concomitant]
  5. POTASSIUM CHLORIDE [Concomitant]
  6. LISINOPRIL [Concomitant]
  7. LEXAPRO [Concomitant]
  8. ACETAMINOPHEN [Concomitant]
  9. PROPACET 100 [Concomitant]
  10. MORPHINE [Concomitant]
  11. ULTRACET [Concomitant]

REACTIONS (3)
  - DRUG EFFECT DECREASED [None]
  - INJECTION SITE IRRITATION [None]
  - OEDEMA PERIPHERAL [None]
